FAERS Safety Report 5050220-0 (Version None)
Quarter: 2006Q3

REPORT INFORMATION
  Report Type: 
  Country: None (occurrence: None)
  Receive Date: 20060713
  Receipt Date: 20060531
  Transmission Date: 20061208
  Serious: No
  Sender: FDA-Public Use
  Company Number: US-BRISTOL-MYERS SQUIBB COMPANY-13397070

PATIENT
  Sex: Male

DRUGS (1)
  1. SINEMET CR [Suspect]
     Indication: PARKINSON'S DISEASE
     Route: 048

REACTIONS (3)
  - ANXIETY [None]
  - CONSTIPATION [None]
  - PNEUMATOSIS [None]
